FAERS Safety Report 26162864 (Version 1)
Quarter: 2025Q4

REPORT INFORMATION
  Report Type: Spontaneous
  Country: US (occurrence: None)
  Receive Date: 20251215
  Receipt Date: 20251215
  Transmission Date: 20260118
  Serious: No
  Sender: FDA-CTU
  Company Number: None

PATIENT

DRUGS (1)
  1. FLUOXETINE\TADALAFIL [Suspect]
     Active Substance: FLUOXETINE\TADALAFIL

REACTIONS (8)
  - Blindness [None]
  - Therapy cessation [None]
  - Drug withdrawal syndrome [None]
  - Illness [None]
  - Stress [None]
  - Influenza like illness [None]
  - Vitreous floaters [None]
  - Optic ischaemic neuropathy [None]
